FAERS Safety Report 7259902-3 (Version None)
Quarter: 2011Q1

REPORT INFORMATION
  Report Type: 
  Country: None (occurrence: None)
  Receive Date: 20110130
  Receipt Date: 20100915
  Transmission Date: 20110831
  Serious: Yes (Hospitalization)
  Sender: FDA-Public Use
  Company Number: US-ABBOTT-10P-163-0664940-00

PATIENT
  Sex: Male
  Weight: 123.49 kg

DRUGS (3)
  1. HUMIRA [Suspect]
     Indication: RHEUMATOID ARTHRITIS
     Dates: start: 20100201, end: 20100728
  2. UNKNOWN DIABETIC MEDICATIONS [Concomitant]
     Indication: DIABETES MELLITUS
     Dosage: NOT REPORTED
  3. UNKNOWN BLOOD PRESSURE MEDICATIONS [Concomitant]
     Indication: HYPERTENSION
     Dosage: NOT REPORTED

REACTIONS (1)
  - DIVERTICULITIS [None]
